FAERS Safety Report 11072380 (Version 1)
Quarter: 2015Q2

REPORT INFORMATION
  Report Type: Spontaneous
  Country: US (occurrence: US)
  Receive Date: 20150428
  Receipt Date: 20150428
  Transmission Date: 20150821
  Serious: Yes (Other)
  Sender: FDA-Public Use
  Company Number: US-GILEAD-2015-0150236

PATIENT
  Age: 81 Year
  Sex: Female

DRUGS (1)
  1. RANEXA [Suspect]
     Active Substance: RANOLAZINE
     Indication: ANGINA PECTORIS
     Dosage: 500 MG, QD
     Route: 065
     Dates: start: 201503

REACTIONS (6)
  - Discomfort [Unknown]
  - Infection susceptibility increased [Unknown]
  - Abdominal distension [Unknown]
  - Weight increased [Unknown]
  - Oedema peripheral [Unknown]
  - Dysuria [Unknown]
